FAERS Safety Report 12802691 (Version 2)
Quarter: 2016Q4

REPORT INFORMATION
  Report Type: Report from Study
  Country: ES (occurrence: ES)
  Receive Date: 20161003
  Receipt Date: 20161018
  Transmission Date: 20170207
  Serious: Yes (Hospitalization)
  Sender: FDA-Public Use
  Company Number: ES-PFIZER INC-2016449989

PATIENT
  Age: 64 Year
  Sex: Female
  Weight: 68 kg

DRUGS (10)
  1. NOLOTIL /06276702/ [Concomitant]
     Indication: OSTEONECROSIS
     Dosage: 575 MG, 3X/DAY
     Route: 048
     Dates: start: 20140902
  2. METFORMIN [Concomitant]
     Active Substance: METFORMIN HYDROCHLORIDE
     Indication: TYPE 2 DIABETES MELLITUS
     Dosage: 850 MG, 3X/DAY
     Route: 048
  3. PARACETAMOL [Concomitant]
     Active Substance: ACETAMINOPHEN
     Indication: OSTEONECROSIS
     Dosage: 1 G, UNK
     Route: 048
     Dates: start: 20151027
  4. ZOMETA [Suspect]
     Active Substance: ZOLEDRONIC ACID
     Indication: ARTHRALGIA
     Dosage: UNK
     Route: 048
     Dates: start: 20110411, end: 20120904
  5. IBUPROFEN. [Concomitant]
     Active Substance: IBUPROFEN
     Indication: OSTEONECROSIS
     Dosage: 600 MG, 3X/DAY
     Route: 048
     Dates: start: 20140902
  6. TARGIN [Concomitant]
     Active Substance: NALOXONE HYDROCHLORIDE\OXYCODONE HYDROCHLORIDE
     Indication: OSTEONECROSIS
     Dosage: 5 MG, 2X/DAY
     Route: 048
     Dates: start: 20151103
  7. PALBOCICLIB [Suspect]
     Active Substance: PALBOCICLIB
     Indication: BREAST CANCER
     Dosage: 125 MG, CYCLIC (3 WEEKS FOLLOWED BY 1 WEEK OFF)
     Route: 048
     Dates: start: 20110516
  8. LETROZOLE. [Suspect]
     Active Substance: LETROZOLE
     Indication: BREAST CANCER
     Dosage: 2.5 MG ONCE CYCLIC
     Route: 048
     Dates: start: 20110516
  9. ENALAPRIL [Concomitant]
     Active Substance: ENALAPRIL
     Indication: HYPERTENSION
     Dosage: UNK
     Route: 048
  10. FENTANYL. [Concomitant]
     Active Substance: FENTANYL
     Indication: OSTEONECROSIS
     Dosage: UNK
     Route: 048
     Dates: start: 20160223

REACTIONS (1)
  - Osteonecrosis of jaw [Recovered/Resolved]

NARRATIVE: CASE EVENT DATE: 20160419
